FAERS Safety Report 6578792-5 (Version None)
Quarter: 2010Q1

REPORT INFORMATION
  Report Type: 
  Country: None (occurrence: None)
  Receive Date: 20100202
  Receipt Date: 20100126
  Transmission Date: 20100710
  Serious: Yes (Hospitalization, Other)
  Sender: FDA-Public Use
  Company Number: 230102J10BRA

PATIENT
  Age: 45 Year
  Sex: Female

DRUGS (3)
  1. REBIF [Suspect]
     Indication: MULTIPLE SCLEROSIS
     Dosage: 44 MCG, 3 IN 1 WEEKS
     Dates: start: 20020101
  2. RIVOTRIL (CLONAZEPAM) [Concomitant]
  3. CITALOPRAM (CITALOPRAM /00582601/) [Concomitant]

REACTIONS (4)
  - MOTOR DYSFUNCTION [None]
  - URINARY TRACT INFECTION [None]
  - VISUAL IMPAIRMENT [None]
  - WEIGHT DECREASED [None]
